FAERS Safety Report 19759697 (Version 2)
Quarter: 2021Q3

REPORT INFORMATION
  Report Type: Spontaneous
  Country: US (occurrence: US)
  Receive Date: 20210830
  Receipt Date: 20210930
  Transmission Date: 20211014
  Serious: Yes (Hospitalization)
  Sender: FDA-Public Use
  Company Number: US-B.I. PHARMACEUTICALS,INC./RIDGEFIELD-2021-BI-123037

PATIENT
  Age: 78 Year
  Sex: Male

DRUGS (1)
  1. OFEV [Suspect]
     Active Substance: NINTEDANIB
     Indication: PRODUCT USED FOR UNKNOWN INDICATION
     Dosage: TWICE DAILY
     Route: 048
     Dates: start: 202106

REACTIONS (10)
  - Delusional disorder, unspecified type [Recovered/Resolved]
  - Dehydration [Recovered/Resolved]
  - Accidental overdose [Unknown]
  - Vomiting [Recovered/Resolved]
  - Hepatic enzyme increased [Unknown]
  - Delusional disorder, unspecified type [Unknown]
  - Dysarthria [Unknown]
  - Chromaturia [Unknown]
  - Dehydration [Unknown]
  - Vomiting [Unknown]

NARRATIVE: CASE EVENT DATE: 202106
